FAERS Safety Report 4939665-4 (Version None)
Quarter: 2006Q1

REPORT INFORMATION
  Report Type: 
  Country: None (occurrence: None)
  Receive Date: 20060310
  Receipt Date: 20051115
  Transmission Date: 20060701
  Serious: Yes (Hospitalization, Disabling)
  Sender: FDA-Public Use
  Company Number: US-MERCK-0511USA02480

PATIENT
  Age: 45 Year
  Sex: Female
  Weight: 50 kg

DRUGS (27)
  1. VIOXX [Suspect]
     Indication: BACK PAIN
     Route: 048
     Dates: start: 20000101, end: 20040101
  2. VIOXX [Suspect]
     Indication: ARTHRITIS
     Route: 048
     Dates: start: 20000101, end: 20040101
  3. TEQUIN [Concomitant]
     Route: 065
  4. AVELOX [Concomitant]
     Route: 065
  5. NASONEX [Concomitant]
     Route: 065
  6. CLARINEX [Concomitant]
     Indication: SEASONAL ALLERGY
     Route: 065
  7. GUAIFENESIN [Concomitant]
     Route: 065
  8. CLARITIN [Concomitant]
     Route: 065
  9. PERIACTIN [Concomitant]
     Route: 048
  10. SEREVENT [Concomitant]
     Route: 065
  11. COMBIVENT [Concomitant]
     Indication: CHRONIC OBSTRUCTIVE PULMONARY DISEASE
     Route: 055
  12. ZITHROMAX [Concomitant]
     Route: 065
  13. FLEXERIL [Concomitant]
     Indication: PAIN
     Route: 048
  14. ADVIL [Concomitant]
     Route: 065
     Dates: start: 19950101, end: 20020101
  15. METHADONE HYDROCHLORIDE [Concomitant]
     Indication: PAIN
     Route: 065
     Dates: start: 20010101, end: 20050101
  16. WELLBUTRIN [Concomitant]
     Indication: DEPRESSION
     Route: 065
     Dates: start: 20020101, end: 20030101
  17. WELLBUTRIN [Concomitant]
     Indication: ANXIETY
     Route: 065
     Dates: start: 20020101, end: 20030101
  18. ASPIRIN [Concomitant]
     Route: 065
     Dates: start: 19990101, end: 20040101
  19. ZESTRIL [Concomitant]
     Indication: HYPERTENSION
     Route: 065
     Dates: start: 20000101, end: 20030101
  20. HYDROCHLOROTHIAZIDE [Concomitant]
     Route: 065
  21. NASACORT [Concomitant]
     Route: 065
  22. SYNTHROID [Concomitant]
     Route: 065
  23. MEGACE [Concomitant]
     Route: 065
  24. ALLEGRA [Concomitant]
     Route: 065
  25. FORADIL [Concomitant]
     Route: 065
  26. NORVASC [Concomitant]
     Route: 065
     Dates: start: 19970101, end: 20030101
  27. ELAVIL [Concomitant]
     Route: 048

REACTIONS (4)
  - DEPRESSION [None]
  - GASTROOESOPHAGEAL REFLUX DISEASE [None]
  - HYPERTENSION [None]
  - MYOCARDIAL INFARCTION [None]
